FAERS Safety Report 5583061-6 (Version None)
Quarter: 2008Q1

REPORT INFORMATION
  Report Type: 
  Country: None (occurrence: None)
  Receive Date: 20080107
  Receipt Date: 20071228
  Transmission Date: 20080703
  Serious: Yes (Other)
  Sender: FDA-Public Use
  Company Number: B0500199A

PATIENT
  Age: 52 Year
  Sex: Female
  Weight: 40 kg

DRUGS (5)
  1. ARIXTRA [Suspect]
     Indication: THROMBOSIS PROPHYLAXIS
     Dosage: 2.5MG PER DAY
     Route: 058
     Dates: start: 20071207, end: 20071211
  2. LOXONIN [Concomitant]
     Route: 065
  3. MUCOSTA [Concomitant]
     Route: 048
  4. VOLTAREN [Concomitant]
     Route: 054
  5. FLUMARIN [Concomitant]
     Route: 042

REACTIONS (2)
  - ANAEMIA [None]
  - POST PROCEDURAL HAEMATOMA [None]
